FAERS Safety Report 18728712 (Version 1)
Quarter: 2021Q1

REPORT INFORMATION
  Report Type: Spontaneous
  Country: US (occurrence: US)
  Receive Date: 20210111
  Receipt Date: 20210111
  Transmission Date: 20210419
  Serious: Yes (Hospitalization)
  Sender: FDA-Public Use
  Company Number: None

PATIENT
  Sex: Female
  Weight: 79.38 kg

DRUGS (6)
  1. VITAMIN B12 [Concomitant]
     Active Substance: CYANOCOBALAMIN
  2. DESMOPRESSIN [Suspect]
     Active Substance: DESMOPRESSIN
     Indication: HYPERTONIC BLADDER
     Dosage: ?          QUANTITY:2 PUFFS;?
     Route: 045
     Dates: start: 20180914
  3. MAGNESIUM [Concomitant]
     Active Substance: MAGNESIUM
  4. VIT D [Concomitant]
     Active Substance: VITAMIN D NOS
  5. CALTRATE [Concomitant]
     Active Substance: CALCIUM CARBONATE
  6. BABY ASA [Concomitant]
     Active Substance: ASPIRIN

REACTIONS (1)
  - Hospitalisation [None]
